FAERS Safety Report 5382527-1 (Version None)
Quarter: 2007Q2

REPORT INFORMATION
  Report Type: 
  Country: None (occurrence: None)
  Receive Date: 20070629
  Receipt Date: 20070129
  Transmission Date: 20071010
  Serious: Yes (Other)
  Sender: FDA-Public Use
  Company Number: US200701006025

PATIENT
  Age: 55 Year
  Sex: Female

DRUGS (8)
  1. HUMALOG [Suspect]
     Indication: DIABETES MELLITUS
  2. MEXILETINE HCL [Concomitant]
  3. PREMARIN (ESTROGENS CONJUGATED, MEDROGESTONE) [Concomitant]
  4. PLAVIX [Concomitant]
  5. MIDODRINE HYDROCHLORIDE [Concomitant]
  6. FLUDROCORTISONE ACETATE [Concomitant]
  7. LANTUS [Concomitant]
  8. METOCLOPRAMIDE [Concomitant]

REACTIONS (4)
  - BLOOD GLUCOSE INCREASED [None]
  - DIABETIC RETINOPATHY [None]
  - DRUG INEFFECTIVE [None]
  - EYE HAEMORRHAGE [None]
